FAERS Safety Report 8157050-1 (Version None)
Quarter: 2012Q1

REPORT INFORMATION
  Report Type: 
  Country: None (occurrence: None)
  Receive Date: 20120222
  Receipt Date: 20120216
  Transmission Date: 20120608
  Serious: Yes (Other)
  Sender: FDA-Public Use
  Company Number: JP-US-EMD SERONO, INC.-7113837

PATIENT
  Sex: Female
  Weight: 52 kg

DRUGS (6)
  1. GONAL-F RFF PEN [Suspect]
     Indication: POLYCYSTIC OVARIES
     Route: 058
     Dates: start: 20110620, end: 20110626
  2. GONAL-F RFF PEN [Suspect]
     Route: 058
     Dates: start: 20110704, end: 20110711
  3. CHORIONIC GONADOTROPIN [Concomitant]
     Indication: POLYCYSTIC OVARIES
     Dates: start: 20110712, end: 20110712
  4. CHORIONIC GONADOTROPIN [Concomitant]
     Indication: OVULATION INDUCTION
  5. METFORMIN HCL [Concomitant]
     Indication: PRODUCT USED FOR UNKNOWN INDICATION
     Route: 048
     Dates: start: 20110620
  6. GONAL-F RFF PEN [Suspect]
     Indication: OVULATION INDUCTION
     Route: 058
     Dates: start: 20110627, end: 20110703

REACTIONS (2)
  - ECTOPIC PREGNANCY [None]
  - ABORTION MISSED [None]
